FAERS Safety Report 7241341-2 (Version None)
Quarter: 2011Q1

REPORT INFORMATION
  Report Type: 
  Country: None (occurrence: None)
  Receive Date: 20110120
  Receipt Date: 20110120
  Transmission Date: 20110831
  Serious: Yes (Hospitalization)
  Sender: FDA-Public Use
  Company Number: None

PATIENT
  Age: 66 Year
  Sex: Female
  Weight: 51.7101 kg

DRUGS (1)
  1. AMLODIPINE BESYLATE [Suspect]
     Indication: ANGINA PECTORIS
     Dosage: 2.5 MG ONCE A DAY 3 MONTHS OFF AND ON
     Dates: start: 20101019, end: 20110110

REACTIONS (6)
  - DISORIENTATION [None]
  - VISUAL IMPAIRMENT [None]
  - FEELING ABNORMAL [None]
  - FATIGUE [None]
  - PALPITATIONS [None]
  - DIZZINESS [None]
